FAERS Safety Report 18645804 (Version 1)
Quarter: 2020Q4

REPORT INFORMATION
  Report Type: Spontaneous
  Country: US (occurrence: US)
  Receive Date: 20201221
  Receipt Date: 20201221
  Transmission Date: 20210114
  Serious: No
  Sender: FDA-Public Use
  Company Number: US-GILEAD-2020-0479539

PATIENT
  Sex: Female

DRUGS (1)
  1. REMDESIVIR. [Suspect]
     Active Substance: REMDESIVIR
     Indication: PRODUCT USED FOR UNKNOWN INDICATION
     Route: 065

REACTIONS (7)
  - Lip dry [Recovered/Resolved]
  - Occupational exposure to product [Unknown]
  - Stress [Recovered/Resolved]
  - Burning sensation [Recovered/Resolved]
  - Dizziness [Recovered/Resolved]
  - Product physical issue [Recovered/Resolved]
  - Nasal dryness [Recovered/Resolved]

NARRATIVE: CASE EVENT DATE: 20200628
